FAERS Safety Report 8060267-8 (Version None)
Quarter: 2012Q1

REPORT INFORMATION
  Report Type: 
  Country: None (occurrence: None)
  Receive Date: 20120120
  Receipt Date: 20111027
  Transmission Date: 20120608
  Serious: No
  Sender: FDA-Public Use
  Company Number: US-NOVEN-11US003503

PATIENT
  Sex: Male
  Weight: 88.435 kg

DRUGS (2)
  1. FENTANYL [Suspect]
     Indication: BACK PAIN
     Dosage: 100 MCG/HR, Q 3DAYS
     Route: 062
  2. FENTANYL [Suspect]
     Dosage: 100 MCG/HR, Q 3 DAYS

REACTIONS (2)
  - PRODUCT QUALITY ISSUE [None]
  - DRUG ADMINISTRATION ERROR [None]
